FAERS Safety Report 6056594-6 (Version None)
Quarter: 2009Q1

REPORT INFORMATION
  Report Type: 
  Country: None (occurrence: None)
  Receive Date: 20090126
  Receipt Date: 20090109
  Transmission Date: 20090719
  Serious: Yes (Death)
  Sender: FDA-Public Use
  Company Number: KV200900064

PATIENT
  Age: 50 Year
  Sex: Male
  Weight: 181.4 kg

DRUGS (3)
  1. MORPHINE SULFATE [Suspect]
     Indication: ARTHRALGIA
     Dosage: 15 MG, TID, PRN
     Dates: start: 20080822, end: 20080901
  2. MORPHINE SULFATE [Suspect]
     Indication: BACK PAIN
     Dosage: 15 MG, TID, PRN
     Dates: start: 20080822, end: 20080901
  3. SEVERAL UNSPECIFIED MEDICATIONS [Concomitant]

REACTIONS (2)
  - OVERDOSE [None]
  - PRODUCT QUALITY ISSUE [None]
